FAERS Safety Report 10462173 (Version 6)
Quarter: 2014Q4

REPORT INFORMATION
  Report Type: Spontaneous
  Country: JP (occurrence: JP)
  Receive Date: 20140918
  Receipt Date: 20141019
  Transmission Date: 20150528
  Serious: Yes (Life-Threatening, Hospitalization, Other)
  Sender: FDA-Public Use
  Company Number: JP-BRISTOL-MYERS SQUIBB COMPANY-21347307

PATIENT
  Age: 88 Year
  Sex: Female
  Weight: 52 kg

DRUGS (3)
  1. ELIQUIS [Suspect]
     Active Substance: APIXABAN
     Indication: ATRIAL FIBRILLATION
     Dosage: TABLET
     Route: 048
     Dates: start: 20140807, end: 20140809
  2. LOXONIN [Suspect]
     Active Substance: LOXOPROFEN SODIUM
  3. BAYASPIRIN [Suspect]
     Active Substance: ASPIRIN
     Dosage: TABLET:ONGOING
     Route: 048

REACTIONS (5)
  - Haemorrhage [Recovered/Resolved]
  - Cardiac failure [Recovering/Resolving]
  - Gastric ulcer [Not Recovered/Not Resolved]
  - Anaemia [Recovered/Resolved]
  - Upper gastrointestinal haemorrhage [Recovered/Resolved]

NARRATIVE: CASE EVENT DATE: 20140729
